FAERS Safety Report 7964947-1 (Version None)
Quarter: 2011Q4

REPORT INFORMATION
  Report Type: 
  Country: None (occurrence: None)
  Receive Date: 20111208
  Receipt Date: 20111208
  Transmission Date: 20120403
  Serious: Yes (Death, Life-Threatening, Hospitalization, Disabling, Congenital Anomaly, Other)
  Sender: FDA-Public Use
  Company Number: None

PATIENT
  Sex: Male
  Weight: 70 kg

DRUGS (1)
  1. FLUOXETINE HCL [Suspect]
     Indication: LIBIDO INCREASED
     Dosage: 0-0-1
     Route: 048
     Dates: start: 20000201, end: 20010101

REACTIONS (15)
  - SOMNOLENCE [None]
  - CONFUSIONAL STATE [None]
  - SYNCOPE [None]
  - NERVOUSNESS [None]
  - RASH [None]
  - DYSPHAGIA [None]
  - SEXUAL DYSFUNCTION [None]
  - DYSPNOEA [None]
  - DISTURBANCE IN ATTENTION [None]
  - ARTHRALGIA [None]
  - HEART RATE INCREASED [None]
  - DECREASED APPETITE [None]
  - HEART RATE IRREGULAR [None]
  - ERECTILE DYSFUNCTION [None]
  - SUICIDE ATTEMPT [None]
